FAERS Safety Report 6312222-3 (Version None)
Quarter: 2009Q3

REPORT INFORMATION
  Report Type: 
  Country: None (occurrence: None)
  Receive Date: 20090817
  Receipt Date: 20090810
  Transmission Date: 20100115
  Serious: No
  Sender: FDA-Public Use
  Company Number: US-BAYER-200912869BCC

PATIENT
  Age: 66 Year
  Sex: Female
  Weight: 91 kg

DRUGS (13)
  1. ALEVE [Suspect]
     Indication: PAIN
     Dosage: TOTAL DAILY DOSE: 440 MG  UNIT DOSE: 220 MG
     Route: 048
     Dates: start: 20090710, end: 20090810
  2. LEVETIRECETAM [Concomitant]
     Dosage: AS USED: 500 MG  UNIT DOSE: 500 MG
     Route: 065
  3. VITAMIN D [Concomitant]
     Dosage: TOTAL DAILY DOSE: 400 IU  UNIT DOSE: 400 IU
     Route: 065
  4. POTASSIUM CHLORIDE [Concomitant]
     Dosage: TOTAL DAILY DOSE: 120 MEQ  UNIT DOSE: 30 MEQ
     Route: 065
  5. XYZAL [Concomitant]
     Dosage: TOTAL DAILY DOSE: 5 MG  UNIT DOSE: 5 MG
     Route: 065
  6. ASTELIN [Concomitant]
     Dosage: 2 SPRAYS PER NOSTRIL DAILY
     Route: 045
  7. PROTONIX [Concomitant]
     Dosage: TOTAL DAILY DOSE: 800 MG  UNIT DOSE: 400 MG
     Route: 065
  8. ADVAIR HFA [Concomitant]
     Route: 065
  9. TYLENOL (CAPLET) [Concomitant]
     Dosage: TOTAL DAILY DOSE: 650 MG  UNIT DOSE: 325 MG
     Route: 065
  10. TRILEPTAL [Concomitant]
     Dosage: TOTAL DAILY DOSE: 1200 MG  UNIT DOSE: 300 MG
     Route: 065
  11. HYDROCHLOROTHIAZIDE [Concomitant]
     Indication: UNEVALUABLE EVENT
     Route: 065
  12. CENTRUM A TO ZINC MULTIVITAMIN [Concomitant]
     Route: 065
  13. CARE ONE CALCIUM WITH VITAMIN D [Concomitant]
     Route: 065

REACTIONS (3)
  - BLOOD PRESSURE INCREASED [None]
  - OEDEMA PERIPHERAL [None]
  - WEIGHT INCREASED [None]
